FAERS Safety Report 16103302 (Version 3)
Quarter: 2019Q4

REPORT INFORMATION
  Report Type: Spontaneous
  Country: AU (occurrence: AU)
  Receive Date: 20190322
  Receipt Date: 20191224
  Transmission Date: 20200122
  Serious: Yes (Hospitalization)
  Sender: FDA-Public Use
  Company Number: AU-SUN PHARMACEUTICAL INDUSTRIES LTD-2019R1-202504

PATIENT
  Age: 10 Day
  Sex: Male
  Weight: 3.5 kg

DRUGS (2)
  1. PARACETAMOL [Suspect]
     Active Substance: ACETAMINOPHEN
     Indication: PRODUCT USED FOR UNKNOWN INDICATION
     Dosage: 200MG (56 MG/KG), UNK (2 DOSES THE DAY OF + 2 DOSES THE DAY AFTER THE PROCEDURE)
     Route: 048
  2. PARACETAMOL [Suspect]
     Active Substance: ACETAMINOPHEN
     Dosage: 40MG, UNK (LAST DOSE)
     Route: 048

REACTIONS (4)
  - Accidental overdose [Unknown]
  - Hyperbilirubinaemia neonatal [Unknown]
  - Gamma-glutamyltransferase increased [Unknown]
  - Incorrect dose administered [Unknown]
